FAERS Safety Report 22520505 (Version 1)
Quarter: 2023Q2

REPORT INFORMATION
  Report Type: Spontaneous
  Country: US (occurrence: None)
  Receive Date: 20230603
  Receipt Date: 20230603
  Transmission Date: 20230721
  Serious: Yes (Disabling)
  Sender: FDA-Public Use
  Company Number: None

PATIENT
  Age: 58 Year
  Sex: Female
  Weight: 54 kg

DRUGS (7)
  1. OCREVUS [Suspect]
     Active Substance: OCRELIZUMAB
     Indication: Multiple sclerosis
  2. IBUPROFEN [Concomitant]
     Active Substance: IBUPROFEN
  3. NORCO [Concomitant]
     Active Substance: ACETAMINOPHEN\HYDROCODONE BITARTRATE
  4. METRONIDAZOLE [Concomitant]
     Active Substance: METRONIDAZOLE
  5. CEPHALEXIN [Concomitant]
     Active Substance: CEPHALEXIN
  6. TYSABRI [Concomitant]
     Active Substance: NATALIZUMAB
  7. VITAMINS [Concomitant]
     Active Substance: VITAMINS

REACTIONS (6)
  - Back pain [None]
  - Arthralgia [None]
  - Gait disturbance [None]
  - Tremor [None]
  - Dizziness [None]
  - Weight decreased [None]

NARRATIVE: CASE EVENT DATE: 20230104
